FAERS Safety Report 14079117 (Version 4)
Quarter: 2017Q4

REPORT INFORMATION
  Report Type: Spontaneous
  Country: NO (occurrence: NO)
  Receive Date: 20171012
  Receipt Date: 20171201
  Transmission Date: 20180321
  Serious: Yes (Life-Threatening, Hospitalization, Other)
  Sender: FDA-Public Use
  Company Number: NO-BRISTOL-MYERS SQUIBB COMPANY-BMS-2017-089394

PATIENT
  Age: 47 Year
  Sex: Female

DRUGS (2)
  1. OPDIVO [Suspect]
     Active Substance: NIVOLUMAB
     Indication: METASTATIC MALIGNANT MELANOMA
     Dosage: 3 MG, UNK
     Route: 042
     Dates: start: 20170920
  2. YERVOY [Suspect]
     Active Substance: IPILIMUMAB
     Indication: METASTATIC MALIGNANT MELANOMA
     Dosage: 3 MG/KG, Q3WK
     Route: 042
     Dates: start: 20170920, end: 20171010

REACTIONS (4)
  - Meningitis bacterial [Recovered/Resolved]
  - Hepatitis [Recovered/Resolved]
  - Septic shock [Unknown]
  - Dermatitis [Unknown]

NARRATIVE: CASE EVENT DATE: 20170929
